FAERS Safety Report 6404143-2 (Version None)
Quarter: 2009Q4

REPORT INFORMATION
  Report Type: 
  Country: None (occurrence: None)
  Receive Date: 20091016
  Receipt Date: 20090928
  Transmission Date: 20100525
  Serious: No
  Sender: FDA-Public Use
  Company Number: US-ALEXION-A200900791

PATIENT
  Sex: Male

DRUGS (6)
  1. SOLIRIS [Suspect]
     Indication: PAROXYSMAL NOCTURNAL HAEMOGLOBINURIA
     Dosage: 600 MG, UNK
     Route: 042
     Dates: start: 20090824
  2. PRILOSEC [Concomitant]
     Dosage: 20 MG, QD
     Route: 048
  3. PROCRIT                            /00909301/ [Concomitant]
     Dosage: 40000 IU, 1 X WEEK
  4. FOLIC ACID [Concomitant]
     Dosage: 1 MG, QD
     Route: 048
  5. NEUPOGEN [Concomitant]
     Dosage: 480 UG, QD
     Route: 048
  6. DECADRON [Concomitant]
     Dosage: 40 MG, QD FOR 5 DAYS OR IN MONTHLY CYCLES

REACTIONS (1)
  - INCORRECT DOSE ADMINISTERED [None]
